FAERS Safety Report 24182704 (Version 1)
Quarter: 2024Q3

REPORT INFORMATION
  Report Type: Spontaneous
  Country: NZ (occurrence: NZ)
  Receive Date: 20240807
  Receipt Date: 20240807
  Transmission Date: 20241016
  Serious: Yes (Death, Hospitalization, Other)
  Sender: ASTELLAS
  Company Number: NZ-ROCHE-10000044400

PATIENT
  Age: 58 Year
  Sex: Male
  Weight: 120 kg

DRUGS (8)
  1. ERLOTINIB [Suspect]
     Active Substance: ERLOTINIB
     Indication: Hepatic cancer
     Dosage: UNK UNK, UNKNOWN FREQ.
     Route: 065
  2. ERLOTINIB [Suspect]
     Active Substance: ERLOTINIB
     Indication: Hepatitis B
  3. ERLOTINIB [Suspect]
     Active Substance: ERLOTINIB
     Indication: Oedema
  4. SORAFENIB [Suspect]
     Active Substance: SORAFENIB
     Indication: Hepatic cancer
     Dosage: UNK UNK, UNKNOWN FREQ.
     Route: 065
  5. SORAFENIB [Suspect]
     Active Substance: SORAFENIB
     Indication: Hepatitis B
  6. SORAFENIB [Suspect]
     Active Substance: SORAFENIB
     Indication: Oedema
  7. FUROSEMIDE [Concomitant]
     Active Substance: FUROSEMIDE
     Indication: Product used for unknown indication
     Dosage: UNK UNK, UNKNOWN FREQ.
     Route: 065
  8. LAMIVUDINE [Concomitant]
     Active Substance: LAMIVUDINE
     Indication: Product used for unknown indication
     Dosage: UNK UNK, UNKNOWN FREQ.
     Route: 065

REACTIONS (2)
  - Hepatic cancer metastatic [Fatal]
  - Palmar-plantar erythrodysaesthesia syndrome [Fatal]

NARRATIVE: CASE EVENT DATE: 20091211
